FAERS Safety Report 5016995-1 (Version None)
Quarter: 2006Q2

REPORT INFORMATION
  Report Type: 
  Country: None (occurrence: None)
  Receive Date: 20060526
  Receipt Date: 20060510
  Transmission Date: 20061013
  Serious: Yes (Hospitalization, Disabling)
  Sender: FDA-Public Use
  Company Number: US200605002208

PATIENT
  Age: 50 Year
  Sex: Male

DRUGS (2)
  1. HUMALOG [Suspect]
     Indication: DIABETES MELLITUS
     Dates: start: 20030101
  2. HUMULIN N [Suspect]
     Indication: DIABETES MELLITUS
     Dates: start: 20030101

REACTIONS (10)
  - BLOOD GLUCOSE INCREASED [None]
  - DRUG INEFFECTIVE [None]
  - DYSPHONIA [None]
  - FALL [None]
  - LUNG INFECTION [None]
  - PLEURAL DISORDER [None]
  - PLEURAL INFECTION [None]
  - RESPIRATORY DISTRESS [None]
  - RIB FRACTURE [None]
  - VOCAL CORD PARALYSIS [None]
